FAERS Safety Report 14473062 (Version 1)
Quarter: 2018Q1

REPORT INFORMATION
  Report Type: Spontaneous
  Country: JP (occurrence: JP)
  Receive Date: 20180201
  Receipt Date: 20180201
  Transmission Date: 20180509
  Serious: Yes (Other)
  Sender: FDA-Public Use
  Company Number: JP-ACCORD-063055

PATIENT
  Sex: Female

DRUGS (4)
  1. MYCOPHENOLIC ACID. [Suspect]
     Active Substance: MYCOPHENOLIC ACID
     Indication: IMMUNOSUPPRESSANT DRUG THERAPY
  2. TACROLIMUS. [Suspect]
     Active Substance: TACROLIMUS
     Indication: IMMUNOSUPPRESSANT DRUG THERAPY
  3. AMPHOTERICIN B/AMPHOTERICIN B/LIPOSOME [Concomitant]
     Indication: INFECTION PROPHYLAXIS
     Route: 048
  4. PREDNISOLONE. [Suspect]
     Active Substance: PREDNISOLONE
     Indication: IMMUNOSUPPRESSANT DRUG THERAPY
     Dosage: INITIAL DOSE OF 30 MG/M^2 FOR 3 DAYS
     Route: 042

REACTIONS (2)
  - Post transplant lymphoproliferative disorder [Unknown]
  - Osteomyelitis bacterial [Recovered/Resolved]
